FAERS Safety Report 4990242-9 (Version None)
Quarter: 2006Q2

REPORT INFORMATION
  Report Type: 
  Country: None (occurrence: None)
  Receive Date: 20060503
  Receipt Date: 20060413
  Transmission Date: 20061013
  Serious: Yes (Hospitalization, Other)
  Sender: FDA-Public Use
  Company Number: US-AVENTIS-200613606US

PATIENT
  Age: 52 Year
  Sex: Female

DRUGS (7)
  1. LANTUS [Suspect]
     Indication: DIABETES MELLITUS NON-INSULIN-DEPENDENT
     Dosage: DOSE UNIT: UNITS
     Route: 051
     Dates: start: 20060221, end: 20060301
  2. LANTUS [Suspect]
     Dosage: DOSE UNIT: UNITS
     Route: 048
     Dates: start: 20060301
  3. OPTICLIK (INSULIN INJECTION PEN) [Suspect]
     Indication: DIABETES MELLITUS NON-INSULIN-DEPENDENT
     Dosage: DOSE: UNK
  4. HYDROCORTISONE [Concomitant]
     Dosage: DOSE: UNK
  5. METFORMIN [Concomitant]
     Dosage: DOSE: UNKNOWN
  6. AMARYL [Concomitant]
     Dosage: DOSE: UNKNOWN
  7. NEXIUM [Concomitant]
     Dosage: DOSE: UNKNOWN

REACTIONS (4)
  - BLOOD GLUCOSE INCREASED [None]
  - CONDITION AGGRAVATED [None]
  - INCORRECT DOSE ADMINISTERED [None]
  - PITUITARY-DEPENDENT CUSHING'S SYNDROME [None]
